FAERS Safety Report 15116236 (Version 1)
Quarter: 2018Q3

REPORT INFORMATION
  Report Type: Spontaneous
  Country: US (occurrence: US)
  Receive Date: 20180706
  Receipt Date: 20180706
  Transmission Date: 20181010
  Serious: No
  Sender: FDA-Public Use
  Company Number: US-RECKITT BENCKISER HEALTHCARE INT LIMITED-RB-99446-2017

PATIENT
  Age: 85 Year
  Sex: Male

DRUGS (1)
  1. MUCINEX DM [Suspect]
     Active Substance: DEXTROMETHORPHAN HYDROBROMIDE\GUAIFENESIN
     Indication: EAR DISORDER
     Dosage: UNK (TOOK FOR SEVERAL DAYS).
     Route: 065

REACTIONS (2)
  - Dizziness [Recovered/Resolved]
  - Product use in unapproved indication [Recovered/Resolved]
